FAERS Safety Report 7998481-X (Version None)
Quarter: 2011Q4

REPORT INFORMATION
  Report Type: 
  Country: None (occurrence: None)
  Receive Date: 20111221
  Receipt Date: 20111212
  Transmission Date: 20120403
  Serious: Yes (Hospitalization)
  Sender: FDA-Public Use
  Company Number: FR-ELI_LILLY_AND_COMPANY-FR201112002885

PATIENT
  Sex: Female
  Weight: 2.65 kg

DRUGS (3)
  1. TRANXENE [Concomitant]
  2. FLUOXETINE HYDROCHLORIDE [Suspect]
     Dosage: UNK
     Route: 064
     Dates: end: 20110517
  3. LEVOTHYROXINE SODIUM [Concomitant]

REACTIONS (7)
  - HYPOCALCAEMIA [None]
  - HYPOTONIA [None]
  - HYPOGLYCAEMIA [None]
  - LOW BIRTH WEIGHT BABY [None]
  - PREMATURE BABY [None]
  - BRADYCARDIA [None]
  - FOETAL EXPOSURE DURING PREGNANCY [None]
